FAERS Safety Report 5415527-3 (Version None)
Quarter: 2007Q3

REPORT INFORMATION
  Report Type: 
  Country: None (occurrence: None)
  Receive Date: 20070815
  Receipt Date: 20070809
  Transmission Date: 20080115
  Serious: Yes (Hospitalization)
  Sender: FDA-Public Use
  Company Number: A0669062A

PATIENT
  Age: 76 Year
  Sex: Female
  Weight: 48 kg

DRUGS (2)
  1. ROSIGLITAZONE [Suspect]
     Dosage: 8MG PER DAY
     Route: 048
     Dates: start: 20070227, end: 20070809
  2. ARICEPT [Concomitant]
     Indication: DEMENTIA
     Dosage: 10MG PER DAY
     Route: 048
     Dates: start: 20031006

REACTIONS (2)
  - FALL [None]
  - HALLUCINATION [None]
